FAERS Safety Report 13319245 (Version 1)
Quarter: 2017Q1

REPORT INFORMATION
  Report Type: Spontaneous
  Country: US (occurrence: US)
  Receive Date: 20170309
  Receipt Date: 20170309
  Transmission Date: 20170428
  Serious: No
  Sender: FDA-Public Use
  Company Number: None

PATIENT
  Age: 75 Year
  Sex: Female

DRUGS (2)
  1. LETROZOLE 2.5MG TEVA PHARMACEUTICALS USA INC [Suspect]
     Active Substance: LETROZOLE
     Indication: MALAISE
     Route: 048
     Dates: start: 20160824
  2. IBRANCE [Suspect]
     Active Substance: PALBOCICLIB
     Indication: MALAISE
     Dosage: DAILY FOR 21 DAYS, THEN 7 DAYS OFF
     Route: 048
     Dates: start: 20160824

REACTIONS (2)
  - Pain in jaw [None]
  - Feeling abnormal [None]

NARRATIVE: CASE EVENT DATE: 20170301
